FAERS Safety Report 6207493-8 (Version None)
Quarter: 2009Q2

REPORT INFORMATION
  Report Type: 
  Country: None (occurrence: None)
  Receive Date: 20090528
  Receipt Date: 20090516
  Transmission Date: 20091009
  Serious: Yes (Death, Hospitalization)
  Sender: FDA-Public Use
  Company Number: US-PFIZER INC-2008065194

PATIENT
  Sex: Female
  Weight: 68 kg

DRUGS (2)
  1. SUNITINIB MALATE [Suspect]
     Indication: METASTATIC RENAL CELL CARCINOMA
     Dosage: 37.5 MG, 1X/DAY
     Route: 048
     Dates: start: 20080522, end: 20080812
  2. DEXAMETHASONE 4MG TAB [Concomitant]
     Route: 048
     Dates: start: 20080801

REACTIONS (2)
  - PNEUMONIA [None]
  - PULMONARY EMBOLISM [None]
